FAERS Safety Report 10258346 (Version 3)
Quarter: 2014Q3

REPORT INFORMATION
  Report Type: Spontaneous
  Country: US (occurrence: US)
  Receive Date: 20140625
  Receipt Date: 20140729
  Transmission Date: 20150326
  Serious: Yes (Hospitalization)
  Sender: FDA-Public Use
  Company Number: US-DENDREON CORPORATION-2014PROUSA03814

PATIENT
  Age: 75 Year
  Sex: Male
  Weight: 96.15 kg

DRUGS (22)
  1. B-50 [Concomitant]
     Indication: PRODUCT USED FOR UNKNOWN INDICATION
     Dosage: UNK, QD
     Route: 048
  2. AMIODARONE [Suspect]
     Active Substance: AMIODARONE
     Indication: ATRIAL FIBRILLATION
     Dosage: UNK
     Dates: start: 201406, end: 20140713
  3. NORVASC [Concomitant]
     Active Substance: AMLODIPINE BESYLATE
     Indication: PRODUCT USED FOR UNKNOWN INDICATION
     Dosage: 5 MG, QD
     Route: 048
  4. LIPITOR [Concomitant]
     Active Substance: ATORVASTATIN CALCIUM
     Indication: PRODUCT USED FOR UNKNOWN INDICATION
     Dosage: 80 MG, QD BEDTIME
     Route: 048
  5. TEA [Concomitant]
     Active Substance: TEA LEAF
     Indication: PRODUCT USED FOR UNKNOWN INDICATION
     Dosage: 315 MG, QD
     Route: 048
  6. MILK THISTLE [Concomitant]
     Active Substance: MILK THISTLE
     Indication: PRODUCT USED FOR UNKNOWN INDICATION
     Dosage: 175 MG, QD
     Route: 048
  7. FERROUS SULFATE [Concomitant]
     Active Substance: FERROUS SULFATE\FERROUS SULFATE, DRIED
     Indication: PRODUCT USED FOR UNKNOWN INDICATION
     Dosage: 325 MG, QD
     Route: 048
  8. TUMS [Concomitant]
     Active Substance: CALCIUM CARBONATE
     Indication: PRODUCT USED FOR UNKNOWN INDICATION
     Dosage: 500 MG, 2 TABS QD
  9. VITAMIN C [Concomitant]
     Active Substance: ASCORBIC ACID
     Indication: PRODUCT USED FOR UNKNOWN INDICATION
     Dosage: 500 MG, BID
     Route: 048
  10. MULTIPLE VITAMINS [Concomitant]
     Active Substance: VITAMINS
     Indication: PRODUCT USED FOR UNKNOWN INDICATION
     Dosage: UNK, QD
     Route: 048
  11. FOLVITE [Concomitant]
     Active Substance: FOLIC ACID
     Indication: PRODUCT USED FOR UNKNOWN INDICATION
     Dosage: 400 ?G, QD
     Route: 048
  12. IMDUR [Concomitant]
     Active Substance: ISOSORBIDE MONONITRATE
     Indication: PRODUCT USED FOR UNKNOWN INDICATION
     Dosage: 30 MG, QD
     Route: 048
  13. COQ10 [Concomitant]
     Active Substance: UBIDECARENONE
     Indication: PRODUCT USED FOR UNKNOWN INDICATION
     Dosage: 10 UNK, QD
     Route: 048
  14. VITAMIN D3 [Concomitant]
     Active Substance: CHOLECALCIFEROL
     Indication: PRODUCT USED FOR UNKNOWN INDICATION
     Dosage: 2000 IU, QD
     Route: 048
  15. CRANBERRY. [Concomitant]
     Active Substance: CRANBERRY
     Indication: PRODUCT USED FOR UNKNOWN INDICATION
     Dosage: 300 MG, QD
     Route: 048
  16. RESVERATROL [Concomitant]
     Active Substance: RESVERATROL
     Indication: PRODUCT USED FOR UNKNOWN INDICATION
     Dosage: UNK, QD
     Route: 048
  17. TYLENOL [Concomitant]
     Active Substance: ACETAMINOPHEN
     Indication: PAIN
     Dosage: 500 MG, PRN
     Route: 048
  18. PROVENGE [Suspect]
     Active Substance: SIPULEUCEL-T
     Dosage: 250 ML, SINGLE
     Route: 042
     Dates: start: 20140711, end: 20140711
  19. PROVENGE [Suspect]
     Active Substance: SIPULEUCEL-T
     Dosage: 250 ML, SINGLE
     Route: 042
     Dates: start: 20140613, end: 20140613
  20. PROSTATE HEALTH COMPLEX [Concomitant]
     Indication: PRODUCT USED FOR UNKNOWN INDICATION
     Dosage: UNK, QD
  21. NITROSTAT [Concomitant]
     Active Substance: NITROGLYCERIN
     Indication: CHEST PAIN
     Dosage: 0.4 MG, PRN
     Route: 060
  22. PROVENGE [Suspect]
     Active Substance: SIPULEUCEL-T
     Indication: PROSTATE CANCER METASTATIC
     Dosage: 250 ML, SINGLE
     Route: 042
     Dates: start: 20140605, end: 20140605

REACTIONS (11)
  - Atrial fibrillation [Recovered/Resolved]
  - Systemic inflammatory response syndrome [Unknown]
  - Bacteraemia [Recovered/Resolved]
  - Atrioventricular block second degree [Unknown]
  - Device malfunction [Recovered/Resolved]
  - Renal failure acute [Recovered/Resolved]
  - Systemic inflammatory response syndrome [Unknown]
  - Dizziness [Unknown]
  - Dysarthria [Recovered/Resolved]
  - Atrioventricular block complete [Unknown]
  - Bradycardia [Unknown]

NARRATIVE: CASE EVENT DATE: 20140613
